FAERS Safety Report 9827490 (Version 1)
Quarter: 2014Q1

REPORT INFORMATION
  Report Type: Spontaneous
  Country: JP (occurrence: JP)
  Receive Date: 20140117
  Receipt Date: 20140117
  Transmission Date: 20141002
  Serious: Yes (Hospitalization)
  Sender: FDA-Public Use
  Company Number: JP-ALLERGAN-1400494US

PATIENT
  Age: 77 Year
  Sex: Male

DRUGS (2)
  1. ALESION TABLET [Suspect]
     Indication: HERPES ZOSTER
     Dosage: 20 MG, QD
     Route: 048
     Dates: start: 20131127, end: 20131128
  2. ACICLOVIR [Suspect]
     Indication: HERPES ZOSTER
     Dosage: 1800 MG, QD
     Route: 048
     Dates: start: 20131127, end: 20131128

REACTIONS (5)
  - Muscular weakness [Recovered/Resolved]
  - Gait disturbance [Unknown]
  - Blood creatine phosphokinase increased [Unknown]
  - Alanine aminotransferase increased [Unknown]
  - Aspartate aminotransferase increased [Unknown]
